FAERS Safety Report 8805319 (Version 1)
Quarter: 2012Q4

REPORT INFORMATION
  Report Type: 
  Country: ES (occurrence: ES)
  Receive Date: 20120924
  Receipt Date: 20120924
  Transmission Date: 20130627
  Serious: Yes (Hospitalization)
  Sender: FDA-Public Use
  Company Number: ES-ROCHE-1128659

PATIENT
  Age: 79 Year
  Sex: Male

DRUGS (4)
  1. AVASTIN [Suspect]
     Indication: MACULAR DEGENERATION
     Dosage: Perfusion solution
     Route: 050
     Dates: start: 20120516, end: 20120516
  2. AVASTIN [Suspect]
     Route: 050
     Dates: start: 20120627, end: 20120627
  3. SINTROM [Suspect]
     Indication: ATRIAL FIBRILLATION
     Route: 048
     Dates: start: 20110223
  4. EMCONCOR [Concomitant]
     Route: 048

REACTIONS (1)
  - Cerebellar haematoma [Not Recovered/Not Resolved]
